FAERS Safety Report 10405903 (Version 2)
Quarter: 2014Q3

REPORT INFORMATION
  Report Type: Spontaneous
  Country: JP (occurrence: JP)
  Receive Date: 20140825
  Receipt Date: 20140911
  Transmission Date: 20150326
  Serious: Yes (Hospitalization)
  Sender: FDA-Public Use
  Company Number: JP-NOVOPROD-419675

PATIENT
  Age: 10 Year
  Sex: Female
  Weight: 28.55 kg

DRUGS (5)
  1. NORDITROPIN [Suspect]
     Active Substance: SOMATROPIN
     Dosage: 0.75 MG, QD
     Route: 058
     Dates: start: 20131226
  2. NORDITROPIN [Suspect]
     Active Substance: SOMATROPIN
     Dosage: 0.92 MG, QD
     Route: 058
     Dates: start: 2014, end: 20140806
  3. NORDITROPIN [Suspect]
     Active Substance: SOMATROPIN
     Indication: GROWTH HORMONE DEFICIENCY
     Dosage: 0.6 MG, QD
     Route: 058
     Dates: start: 20130321
  4. NORDITROPIN [Suspect]
     Active Substance: SOMATROPIN
     Dosage: 0.7 MG, QD
     Route: 058
     Dates: start: 20130725
  5. NORDITROPIN [Suspect]
     Active Substance: SOMATROPIN
     Dosage: 0.85 MG, QD
     Route: 058
     Dates: start: 20140227

REACTIONS (1)
  - Acute lymphocytic leukaemia [Not Recovered/Not Resolved]

NARRATIVE: CASE EVENT DATE: 20140804
